FAERS Safety Report 16776923 (Version 4)
Quarter: 2020Q2

REPORT INFORMATION
  Report Type: Spontaneous
  Country: ZA (occurrence: ZA)
  Receive Date: 20190905
  Receipt Date: 20200511
  Transmission Date: 20200713
  Serious: Yes (Life-Threatening, Other)
  Sender: FDA-Public Use
  Company Number: PHHY2019ZA202783

PATIENT
  Age: 7 Year
  Sex: Male
  Weight: 24.2 kg

DRUGS (3)
  1. EXJADE [Suspect]
     Active Substance: DEFERASIROX
     Dosage: 30 MG/KG
     Route: 048
  2. EXJADE [Suspect]
     Active Substance: DEFERASIROX
     Indication: THALASSAEMIA
     Dosage: UNK UNK, QD (750MG/ 500 MG)
     Route: 048
     Dates: start: 20161110
  3. EXJADE [Suspect]
     Active Substance: DEFERASIROX
     Dosage: 10 MG/KG
     Route: 048

REACTIONS (4)
  - Hypertensive crisis [Recovered/Resolved]
  - Dehydration [Unknown]
  - Infection [Unknown]
  - Hepatitis [Unknown]

NARRATIVE: CASE EVENT DATE: 20190821
